FAERS Safety Report 8524544-6 (Version None)
Quarter: 2012Q3

REPORT INFORMATION
  Report Type: 
  Country: None (occurrence: None)
  Receive Date: 20120720
  Receipt Date: 20120705
  Transmission Date: 20120928
  Serious: Yes (Other)
  Sender: FDA-Public Use
  Company Number: GB-ARROW-2012-12875

PATIENT

DRUGS (1)
  1. LAMOTRIGINE [Suspect]
     Indication: FOETAL EXPOSURE DURING PREGNANCY
     Dosage: UNK
     Route: 064

REACTIONS (2)
  - DEVELOPMENTAL DELAY [None]
  - NEURODEVELOPMENTAL DISORDER [None]
